FAERS Safety Report 10663426 (Version 2)
Quarter: 2014Q4

REPORT INFORMATION
  Report Type: Spontaneous
  Country: GB (occurrence: GB)
  Receive Date: 20141218
  Receipt Date: 20141226
  Transmission Date: 20150529
  Serious: Yes (Death, Life-Threatening, Hospitalization, Disabling, Other)
  Sender: FDA-Public Use
  Company Number: GB-ASTRAZENECA-2014SE96228

PATIENT
  Age: 75 Year
  Sex: Male
  Weight: 51 kg

DRUGS (25)
  1. SIMVASTATIN. [Concomitant]
     Active Substance: SIMVASTATIN
  2. CEFTRIAXONE. [Suspect]
     Active Substance: CEFTRIAXONE
     Indication: MENINGITIS
     Route: 042
     Dates: start: 20141007, end: 20141013
  3. CYCLIZINE [Concomitant]
     Active Substance: CYCLIZINE
  4. LORAZEPAM. [Concomitant]
     Active Substance: LORAZEPAM
  5. ONDANSETRON [Concomitant]
     Active Substance: ONDANSETRON
  6. SODIUM VALPROATE [Concomitant]
     Active Substance: VALPROATE SODIUM
  7. PROCHLORPERAZINE. [Concomitant]
     Active Substance: PROCHLORPERAZINE
  8. WARFARIN [Concomitant]
     Active Substance: WARFARIN
  9. BISOPROLOL [Concomitant]
     Active Substance: BISOPROLOL
  10. LEVOTHYROXINE [Concomitant]
     Active Substance: LEVOTHYROXINE
  11. TRAMADOL [Concomitant]
     Active Substance: TRAMADOL
  12. MEROPENEM. [Suspect]
     Active Substance: MEROPENEM
     Indication: SEPSIS
     Route: 042
     Dates: start: 20141007, end: 20141013
  13. BUPRENORPHINE [Concomitant]
     Active Substance: BUPRENORPHINE
  14. ISOSORBIDE [Concomitant]
     Active Substance: ISOSORBIDE
  15. MORPHINE [Concomitant]
     Active Substance: MORPHINE
  16. PIPERACILLIN AND TAZOBACTAM [Suspect]
     Active Substance: PIPERACILLIN SODIUM\TAZOBACTAM SODIUM
     Indication: SEPSIS
     Route: 042
     Dates: end: 20141027
  17. TRIMETHOPRIM. [Suspect]
     Active Substance: TRIMETHOPRIM
     Indication: URINARY TRACT INFECTION
     Route: 048
     Dates: start: 20141022, end: 20141025
  18. LEVEMIR [Concomitant]
     Active Substance: INSULIN DETEMIR
  19. NOVORAPID [Concomitant]
     Active Substance: INSULIN ASPART
  20. PARACETAMOL [Concomitant]
     Active Substance: ACETAMINOPHEN
  21. ATENOLOL. [Concomitant]
     Active Substance: ATENOLOL
  22. TINZAPARIN [Concomitant]
     Active Substance: TINZAPARIN
  23. OMEPRAZOLE. [Concomitant]
     Active Substance: OMEPRAZOLE
  24. METRONIDAZOLE. [Concomitant]
     Active Substance: METRONIDAZOLE
  25. VANCOMYCIN [Concomitant]
     Active Substance: VANCOMYCIN

REACTIONS (5)
  - Confusional state [Unknown]
  - Clostridium difficile colitis [Unknown]
  - Hypotension [Unknown]
  - Subdural haemorrhage [Fatal]
  - Fall [Fatal]

NARRATIVE: CASE EVENT DATE: 20141027
